FAERS Safety Report 21331775 (Version 10)
Quarter: 2023Q4

REPORT INFORMATION
  Report Type: Report from Study
  Country: CO (occurrence: CO)
  Receive Date: 20220914
  Receipt Date: 20231004
  Transmission Date: 20240109
  Serious: Yes (Hospitalization)
  Sender: FDA-Public Use
  Company Number: CO-NOVARTISPH-NVSC2022CO207049

PATIENT
  Sex: Male

DRUGS (6)
  1. ELTROMBOPAG OLAMINE [Suspect]
     Active Substance: ELTROMBOPAG OLAMINE
     Indication: Immune thrombocytopenia
     Dosage: 50 MG (4 DAYS AGO, AT 4 IN THE AFTERNOON)
     Route: 048
  2. ELTROMBOPAG OLAMINE [Suspect]
     Active Substance: ELTROMBOPAG OLAMINE
     Dosage: 50 MG, QD
     Route: 048
     Dates: start: 20220909
  3. ELTROMBOPAG OLAMINE [Suspect]
     Active Substance: ELTROMBOPAG OLAMINE
     Dosage: 25 MG, QD
     Route: 048
  4. ELTROMBOPAG OLAMINE [Suspect]
     Active Substance: ELTROMBOPAG OLAMINE
     Dosage: UNK, QD (ONCE DAILY)
     Route: 048
  5. ELTROMBOPAG OLAMINE [Suspect]
     Active Substance: ELTROMBOPAG OLAMINE
     Dosage: 50 MG, QD
     Route: 048
  6. ELTROMBOPAG OLAMINE [Suspect]
     Active Substance: ELTROMBOPAG OLAMINE
     Dosage: 50 MG, QD
     Route: 048
     Dates: start: 2022

REACTIONS (6)
  - Seizure [Unknown]
  - Malaise [Unknown]
  - Platelet count decreased [Unknown]
  - Urinary tract infection [Unknown]
  - Klebsiella infection [Unknown]
  - Blood glucose increased [Unknown]
